FAERS Safety Report 4338455-3 (Version None)
Quarter: 2004Q2

REPORT INFORMATION
  Report Type: 
  Country: None (occurrence: None)
  Receive Date: 20040409
  Receipt Date: 20040325
  Transmission Date: 20050107
  Serious: Yes (Hospitalization)
  Sender: FDA-Public Use
  Company Number: 2004-FF-00212FF

PATIENT
  Age: 24 Hour
  Sex: Male
  Weight: 2.8 kg

DRUGS (7)
  1. VIRAMUNE [Suspect]
     Indication: HIV INFECTION
     Dosage: 1 DOSE, PO
     Route: 048
  2. RETROVIR [Suspect]
     Indication: HIV INFECTION
     Dosage: 100 MG PO
     Route: 048
  3. ROVAMYCINE (SPIRAMYCIN) [Concomitant]
  4. RULID [Concomitant]
  5. AUGMENTIN [Concomitant]
  6. INDOCIN [Concomitant]
  7. BETA 2 ADRENERGIC AGONIST AGENT [Concomitant]

REACTIONS (9)
  - ABDOMINAL DISTENSION [None]
  - ANAEMIA MACROCYTIC [None]
  - BLOOD CREATINE PHOSPHOKINASE INCREASED [None]
  - CAESAREAN SECTION [None]
  - CANDIDIASIS [None]
  - GAIT DISTURBANCE [None]
  - MATERNAL DRUGS AFFECTING FOETUS [None]
  - NEONATAL DISORDER [None]
  - NEUTROPENIA NEONATAL [None]
